FAERS Safety Report 13459279 (Version 1)
Quarter: 2017Q2

REPORT INFORMATION
  Report Type: Spontaneous
  Country: US (occurrence: US)
  Receive Date: 20170419
  Receipt Date: 20170419
  Transmission Date: 20170830
  Serious: No
  Sender: FDA-Public Use
  Company Number: US-ELI_LILLY_AND_COMPANY-US201704006679

PATIENT
  Age: 69 Year
  Sex: Female

DRUGS (5)
  1. AMBRISENTAN [Interacting]
     Active Substance: AMBRISENTAN
     Dosage: UNK, UNKNOWN
     Route: 065
  2. ADCIRCA [Concomitant]
     Active Substance: TADALAFIL
     Indication: PRODUCT USED FOR UNKNOWN INDICATION
     Dosage: UNK, UNKNOWN
     Route: 065
  3. PROZAC [Suspect]
     Active Substance: FLUOXETINE HYDROCHLORIDE
     Indication: PRODUCT USED FOR UNKNOWN INDICATION
     Dosage: 10 MG, UNKNOWN
     Route: 065
  4. AMBRISENTAN [Interacting]
     Active Substance: AMBRISENTAN
     Indication: PULMONARY HYPERTENSION
     Dosage: 10 MG, QD
     Route: 065
     Dates: start: 201606
  5. VITAMIN D3 [Concomitant]
     Active Substance: CHOLECALCIFEROL
     Indication: PRODUCT USED FOR UNKNOWN INDICATION
     Dosage: UNK, UNKNOWN
     Route: 065

REACTIONS (8)
  - Erythema [Unknown]
  - Tinnitus [Unknown]
  - Nasal congestion [Unknown]
  - Fatigue [Unknown]
  - Swelling [Unknown]
  - Drug interaction [Unknown]
  - Somnambulism [Unknown]
  - Feeling abnormal [Unknown]
